FAERS Safety Report 22179742 (Version 2)
Quarter: 2023Q2

REPORT INFORMATION
  Report Type: Spontaneous
  Country: JP (occurrence: JP)
  Receive Date: 20230406
  Receipt Date: 20230519
  Transmission Date: 20230722
  Serious: Yes (Disabling, Other)
  Sender: FDA-Public Use
  Company Number: JP-UCBJ-CD202303541UCBPHAPROD

PATIENT
  Age: 62 Year
  Sex: Male
  Weight: 49.2 kg

DRUGS (4)
  1. LEVETIRACETAM [Suspect]
     Active Substance: LEVETIRACETAM
     Indication: Seizure prophylaxis
     Dosage: 500 MILLIGRAM
     Route: 048
     Dates: start: 20230219, end: 20230224
  2. LEVETIRACETAM [Suspect]
     Active Substance: LEVETIRACETAM
     Indication: Off label use
  3. MEROPENEM [Concomitant]
     Active Substance: MEROPENEM
     Indication: Abscess neck
     Route: 041
     Dates: start: 20230201
  4. SIVEXTRO [Concomitant]
     Active Substance: TEDIZOLID PHOSPHATE
     Indication: Abscess neck
     Dosage: UNK
     Route: 041
     Dates: start: 20230206

REACTIONS (4)
  - Thrombosis [Recovered/Resolved with Sequelae]
  - Plasmapheresis [Unknown]
  - Haemodialysis [Unknown]
  - Off label use [Unknown]

NARRATIVE: CASE EVENT DATE: 20230219
